FAERS Safety Report 14851475 (Version 1)
Quarter: 2018Q2

REPORT INFORMATION
  Report Type: Spontaneous
  Country: FR (occurrence: FR)
  Receive Date: 20180507
  Receipt Date: 20180507
  Transmission Date: 20180711
  Serious: Yes (Hospitalization)
  Sender: FDA-Public Use
  Company Number: FR-TEVA-2018-FR-889470

PATIENT
  Age: 69 Year
  Sex: Male

DRUGS (3)
  1. FUROSEMIDE. [Suspect]
     Active Substance: FUROSEMIDE
     Indication: OEDEMA
     Route: 042
  2. DAPTOMYCINE [Suspect]
     Active Substance: DAPTOMYCIN
     Indication: INFECTION
     Route: 065
  3. MEROPENEM ANHYDRE [Suspect]
     Active Substance: MEROPENEM
     Indication: INFECTION
     Route: 065

REACTIONS (1)
  - Pancytopenia [Not Recovered/Not Resolved]
